FAERS Safety Report 7657237-8 (Version None)
Quarter: 2011Q3

REPORT INFORMATION
  Report Type: 
  Country: None (occurrence: None)
  Receive Date: 20110804
  Receipt Date: 20110721
  Transmission Date: 20111222
  Serious: Yes (Other)
  Sender: FDA-Public Use
  Company Number: PHEH2009US09458

PATIENT
  Sex: Male

DRUGS (7)
  1. GLEEVEC [Suspect]
     Indication: CHRONIC MYELOID LEUKAEMIA
     Dosage: 400 MG, UNK
     Route: 065
     Dates: start: 20050101
  2. SPRYCEL [Suspect]
     Route: 065
  3. LISINOPRIL [Concomitant]
     Route: 065
  4. TASIGNA [Suspect]
     Dosage: 200 MG, QID
     Route: 065
     Dates: start: 20070101
  5. TASIGNA [Suspect]
     Dosage: 200 MG, BID
  6. TASIGNA [Suspect]
     Dosage: 200 MG, TID
  7. TASIGNA [Suspect]
     Dosage: 200 MG, QD

REACTIONS (5)
  - LEUKOPENIA [None]
  - ACUTE FEBRILE NEUTROPHILIC DERMATOSIS [None]
  - HAEMORRHAGE [None]
  - SKIN DISORDER [None]
  - FATIGUE [None]
